FAERS Safety Report 17860294 (Version 1)
Quarter: 2020Q2

REPORT INFORMATION
  Report Type: Spontaneous
  Country: US (occurrence: US)
  Receive Date: 20200604
  Receipt Date: 20200604
  Transmission Date: 20200714
  Serious: Yes (Hospitalization)
  Sender: FDA-Public Use
  Company Number: US-MYLANLABS-2020M1053706

PATIENT
  Age: 22 Month
  Sex: Female

DRUGS (6)
  1. LIDOCAINE. [Concomitant]
     Active Substance: LIDOCAINE
     Indication: PRODUCT USED FOR UNKNOWN INDICATION
     Dosage: UNK
     Route: 065
  2. IRON [Concomitant]
     Active Substance: IRON
     Indication: IRON DEFICIENCY ANAEMIA
     Dosage: UNK
     Route: 065
  3. TRILEPTAL [Suspect]
     Active Substance: OXCARBAZEPINE
     Indication: SEIZURE
     Dosage: UNK
     Route: 065
  4. DILANTIN [Concomitant]
     Active Substance: PHENYTOIN
     Indication: PRODUCT USED FOR UNKNOWN INDICATION
     Dosage: UNK
     Route: 065
  5. FOSPHENYTOIN [Suspect]
     Active Substance: FOSPHENYTOIN
     Indication: SEIZURE
     Dosage: UNK
     Route: 065
  6. THORAZINE [Concomitant]
     Active Substance: CHLORPROMAZINE
     Indication: PRODUCT USED FOR UNKNOWN INDICATION
     Dosage: UNK
     Route: 065

REACTIONS (1)
  - Drug ineffective [Unknown]
